FAERS Safety Report 15784898 (Version 2)
Quarter: 2019Q1

REPORT INFORMATION
  Report Type: Report from Study
  Country: US (occurrence: US)
  Receive Date: 20190103
  Receipt Date: 20190124
  Transmission Date: 20190417
  Serious: Yes (Hospitalization)
  Sender: FDA-Public Use
  Company Number: US-BIOGEN-2018BI00676253

PATIENT
  Age: 53 Year
  Sex: Female

DRUGS (2)
  1. TYSABRI [Suspect]
     Active Substance: NATALIZUMAB
     Indication: MULTIPLE SCLEROSIS
     Dosage: INFUSED FOR OVER 1 HOUR
     Route: 065
     Dates: start: 20080527
  2. TYSABRI [Suspect]
     Active Substance: NATALIZUMAB
     Route: 065
     Dates: start: 2009

REACTIONS (3)
  - Multiple fractures [Unknown]
  - Road traffic accident [Recovered/Resolved]
  - Bladder injury [Unknown]

NARRATIVE: CASE EVENT DATE: 20181204
